FAERS Safety Report 5508911-0 (Version None)
Quarter: 2007Q4

REPORT INFORMATION
  Report Type: 
  Country: None (occurrence: None)
  Receive Date: 20071107
  Receipt Date: 20071030
  Transmission Date: 20080405
  Serious: Yes (Hospitalization)
  Sender: FDA-Public Use
  Company Number: TR-JNJFOC-20071008075

PATIENT
  Age: 17 Year
  Sex: Female

DRUGS (3)
  1. PARACETAMOL [Suspect]
  2. PARACETAMOL [Suspect]
     Indication: BACK PAIN
  3. NSAID [Suspect]
     Indication: BACK PAIN

REACTIONS (1)
  - TUBULOINTERSTITIAL NEPHRITIS [None]
